FAERS Safety Report 11850731 (Version 1)
Quarter: 2015Q4

REPORT INFORMATION
  Report Type: Spontaneous
  Country: US (occurrence: US)
  Receive Date: 20151218
  Receipt Date: 20151218
  Transmission Date: 20160305
  Serious: No
  Sender: FDA-Public Use
  Company Number: US-JNJFOC-20151120778

PATIENT
  Sex: Female
  Weight: 58.97 kg

DRUGS (2)
  1. MENS ROGAINE EXTRA STRENGTH [Suspect]
     Active Substance: MINOXIDIL
     Indication: ALOPECIA
     Dosage: ONCE DAILY SOMETIMES TWICE
     Route: 061
  2. MENS ROGAINE EXTRA STRENGTH [Suspect]
     Active Substance: MINOXIDIL
     Indication: ANAEMIA
     Dosage: ONCE DAILY SOMETIMES TWICE
     Route: 061

REACTIONS (4)
  - Drug administered at inappropriate site [Unknown]
  - Wrong patient received medication [Unknown]
  - Off label use [Unknown]
  - Product use issue [Unknown]
